FAERS Safety Report 23466996 (Version 1)
Quarter: 2024Q1

REPORT INFORMATION
  Report Type: Report from Study
  Country: CA (occurrence: None)
  Receive Date: 20240201
  Receipt Date: 20240201
  Transmission Date: 20240409
  Serious: Yes (Hospitalization, Other)
  Sender: FDA-Public Use
  Company Number: 2024A021795

PATIENT
  Age: 36 Year
  Sex: Female

DRUGS (5)
  1. SYMBICORT [Suspect]
     Active Substance: BUDESONIDE\FORMOTEROL FUMARATE DIHYDRATE
     Indication: Asthma
     Route: 055
  2. SYMBICORT [Concomitant]
     Active Substance: BUDESONIDE\FORMOTEROL FUMARATE DIHYDRATE
     Dosage: 200MCG PRN
     Route: 055
  3. ARNUITY ELLIPTA [Concomitant]
     Active Substance: FLUTICASONE FUROATE
     Dosage: 1 PUFF/DAY
     Route: 055
  4. SPIRIVA RESPIMAT [Concomitant]
     Active Substance: TIOTROPIUM BROMIDE
     Dosage: 2 PUFF/DAY
     Route: 055
  5. ALVESCO [Concomitant]
     Active Substance: CICLESONIDE
     Dosage: 1 PUFF/DAY
     Route: 055

REACTIONS (9)
  - Pancreatitis [Unknown]
  - Exposure during pregnancy [Unknown]
  - Organising pneumonia [Unknown]
  - Viral infection [Recovered/Resolved]
  - Pharyngitis streptococcal [Unknown]
  - Cough [Unknown]
  - Candida infection [Unknown]
  - Asthma [Unknown]
  - Drug ineffective [Unknown]
